FAERS Safety Report 24653226 (Version 1)
Quarter: 2024Q4

REPORT INFORMATION
  Report Type: Spontaneous
  Country: US (occurrence: None)
  Receive Date: 20241122
  Receipt Date: 20241122
  Transmission Date: 20250114
  Serious: No
  Sender: Public
  Company Number: None

PATIENT
  Sex: Female

DRUGS (1)
  1. KESIMPTA [Suspect]
     Active Substance: OFATUMUMAB
     Indication: Product used for unknown indication
     Dosage: 20 MG EVERY MONTH SUBCUTANEOUS?
     Route: 058
     Dates: start: 202402

REACTIONS (7)
  - Drug ineffective [None]
  - Central nervous system lesion [None]
  - Spinal cord disorder [None]
  - Muscular weakness [None]
  - Gastrointestinal disorder [None]
  - Fatigue [None]
  - Disturbance in attention [None]
